FAERS Safety Report 9210859 (Version 1)
Quarter: 2013Q2

REPORT INFORMATION
  Report Type: Spontaneous
  Country: DE (occurrence: DE)
  Receive Date: 20130404
  Receipt Date: 20130404
  Transmission Date: 20140414
  Serious: Yes (Congenital Anomaly, Other)
  Sender: FDA-Public Use
  Company Number: GXKR2013DE001304

PATIENT
  Sex: 0

DRUGS (3)
  1. FLUOXETINE [Suspect]
     Dosage: MATERNAL DOSE: 20 [MG/D ]
     Route: 064
     Dates: start: 20110830, end: 20120522
  2. LAMICTAL [Suspect]
     Dosage: MATERNAL DOSE: 200 [MG/D ]
     Route: 064
     Dates: start: 20110830, end: 20120522
  3. CYMBALTA [Suspect]
     Dosage: MATERNAL DOSE: 60 [MG/D ]
     Route: 064
     Dates: start: 20110830, end: 20120522

REACTIONS (4)
  - Atrial septal defect [Not Recovered/Not Resolved]
  - Agitation neonatal [Recovered/Resolved]
  - Neonatal respiratory distress syndrome [Recovered/Resolved]
  - Foetal exposure during pregnancy [Unknown]
